FAERS Safety Report 4512961-0 (Version None)
Quarter: 2004Q4

REPORT INFORMATION
  Report Type: 
  Country: None (occurrence: None)
  Receive Date: 20041124
  Receipt Date: 20041124
  Transmission Date: 20050328
  Serious: Yes (Hospitalization)
  Sender: FDA-Public Use
  Company Number: None

PATIENT
  Age: 40 Year
  Sex: Male
  Weight: 88.4514 kg

DRUGS (2)
  1. DEPAKOE ER 500 MG ABBOTT [Suspect]
     Indication: MAJOR DEPRESSION
     Dosage: 1000 QHS
     Dates: start: 20041109, end: 20041116
  2. EFFEXOR XR [Concomitant]

REACTIONS (2)
  - CONFUSIONAL STATE [None]
  - HEADACHE [None]
